FAERS Safety Report 12735583 (Version 1)
Quarter: 2016Q3

REPORT INFORMATION
  Report Type: Spontaneous
  Country: GB (occurrence: GB)
  Receive Date: 20160913
  Receipt Date: 20160913
  Transmission Date: 20161109
  Serious: Yes (Other)
  Sender: FDA-Public Use
  Company Number: GB-TEVA-690220ACC

PATIENT
  Sex: Male

DRUGS (3)
  1. MYFENAX [Suspect]
     Active Substance: MYCOPHENOLATE MOFETIL
     Route: 065
  2. PREDNISOLONE. [Suspect]
     Active Substance: PREDNISOLONE
     Route: 065
  3. DEXIMUNE (DEXCEL PHARMA) [Suspect]
     Active Substance: CYCLOSPORINE

REACTIONS (2)
  - Malaise [Unknown]
  - Haemorrhage [Unknown]
